FAERS Safety Report 23751981 (Version 2)
Quarter: 2024Q2

REPORT INFORMATION
  Report Type: Report from Study
  Country: US (occurrence: US)
  Receive Date: 20240417
  Receipt Date: 20240429
  Transmission Date: 20240716
  Serious: Yes (Life-Threatening, Other)
  Sender: FDA-Public Use
  Company Number: US-OTSUKA-2024_004942

PATIENT
  Age: 43 Year
  Sex: Female

DRUGS (1)
  1. TOLVAPTAN [Suspect]
     Active Substance: TOLVAPTAN
     Indication: Congenital cystic kidney disease
     Dosage: UNK
     Route: 065
     Dates: start: 20240202

REACTIONS (5)
  - Liver injury [Unknown]
  - Transaminases increased [Unknown]
  - Blood creatinine increased [Unknown]
  - Thirst [Unknown]
  - Polyuria [Unknown]

NARRATIVE: CASE EVENT DATE: 20240222
